FAERS Safety Report 21714521 (Version 1)
Quarter: 2022Q4

REPORT INFORMATION
  Report Type: Spontaneous
  Country: US (occurrence: None)
  Receive Date: 20221209
  Receipt Date: 20221209
  Transmission Date: 20230113
  Serious: Yes (Hospitalization)
  Sender: FDA-Public Use
  Company Number: None

PATIENT
  Age: 41 Year
  Sex: Male

DRUGS (10)
  1. ASTAGRAF XL [Suspect]
     Active Substance: TACROLIMUS
     Indication: Renal transplant
     Dosage: FREQUENCY : DAILY;?
     Route: 048
     Dates: start: 20200709
  2. MYCOPHENOLATE MOFETIL [Suspect]
     Active Substance: MYCOPHENOLATE MOFETIL
     Indication: Renal transplant
     Dosage: FREQUENCY : TWICE A DAY;?
     Route: 048
     Dates: start: 20181001
  3. CLONIDINE [Concomitant]
     Active Substance: CLONIDINE
     Dates: start: 20191207
  4. Labetalol HCl 200 mg [Concomitant]
     Dates: start: 20210210
  5. PREDNISONE [Concomitant]
     Active Substance: PREDNISONE
     Dates: start: 20220715
  6. MAGNESIUM OXIDE [Concomitant]
     Active Substance: MAGNESIUM OXIDE
     Dates: start: 20220815, end: 20220914
  7. Calcitriol 0.5 mg [Concomitant]
     Dates: start: 20220715
  8. Calcium-vitamin D 500mg-200units [Concomitant]
     Dates: start: 20220615
  9. Vitamin D 50,000 units [Concomitant]
     Dates: start: 20220812
  10. Sodium bicarbonate 650 mg [Concomitant]
     Dates: start: 20220815, end: 20220914

REACTIONS (1)
  - Hospitalisation [None]

NARRATIVE: CASE EVENT DATE: 20221209
